FAERS Safety Report 12424711 (Version 1)
Quarter: 2016Q2

REPORT INFORMATION
  Report Type: Spontaneous
  Country: US (occurrence: US)
  Receive Date: 20160601
  Receipt Date: 20160601
  Transmission Date: 20160815
  Serious: Yes (Hospitalization, Other)
  Sender: FDA-Public Use
  Company Number: US-GLAXOSMITHKLINE-US2016GSK077138

PATIENT
  Age: 50 Year
  Sex: Female

DRUGS (2)
  1. LAMOTRIGINE. [Suspect]
     Active Substance: LAMOTRIGINE
     Indication: DEPRESSION
     Dosage: 150 MG, UNK
  2. LAMICTAL [Suspect]
     Active Substance: LAMOTRIGINE
     Indication: DEPRESSION
     Dosage: 150 MG, UNK

REACTIONS (5)
  - Chronic obstructive pulmonary disease [Unknown]
  - Pneumothorax [Unknown]
  - Off label use [Unknown]
  - Dyspnoea [Unknown]
  - Product use issue [Unknown]

NARRATIVE: CASE EVENT DATE: 201604
